FAERS Safety Report 24215087 (Version 2)
Quarter: 2024Q3

REPORT INFORMATION
  Report Type: Spontaneous
  Country: CN (occurrence: CN)
  Receive Date: 20240816
  Receipt Date: 20240919
  Transmission Date: 20241016
  Serious: Yes (Hospitalization, Other)
  Sender: QILU PHARMACEUTICAL
  Company Number: CN-QILU PHARMACEUTICAL (HAINAN) CO.  LTD.-QLH-000193-2024

PATIENT
  Age: 60 Year
  Sex: Male

DRUGS (10)
  1. OXALIPLATIN [Suspect]
     Active Substance: OXALIPLATIN
     Indication: Adenocarcinoma
     Dosage: 240 MG ON DAY 1
     Route: 042
     Dates: start: 20210312, end: 2021
  2. OXALIPLATIN [Suspect]
     Active Substance: OXALIPLATIN
     Dosage: 230 MG
     Route: 042
     Dates: start: 202103, end: 2021
  3. OXALIPLATIN [Suspect]
     Active Substance: OXALIPLATIN
     Dosage: 200 MG; 4TH AND 5TH COURSE OF CHEMOTHERAPY
     Route: 042
     Dates: start: 2021, end: 2021
  4. OXALIPLATIN [Suspect]
     Active Substance: OXALIPLATIN
     Dosage: 200 MG; 6TH COURSE OF CHEMOTHERAPY
     Route: 042
     Dates: start: 20210726, end: 2021
  5. CAPECITABINE [Suspect]
     Active Substance: CAPECITABINE
     Indication: Adenocarcinoma
     Dosage: 2000 MG, EVERY MORNING (Q.M.) ON DAY 1-14
     Route: 048
     Dates: start: 20210312, end: 202103
  6. CAPECITABINE [Suspect]
     Active Substance: CAPECITABINE
     Dosage: 1500MG EVERY NIGHT (Q.N.), ON  DAY 1-14
     Route: 048
     Dates: start: 20210312, end: 202103
  7. CAPECITABINE [Suspect]
     Active Substance: CAPECITABINE
     Dosage: 1500 MG TWICE DAILY
     Route: 048
     Dates: start: 202103, end: 2021
  8. CAPECITABINE [Suspect]
     Active Substance: CAPECITABINE
     Dosage: 1500 MG TWICE DAILY; 4TH AND 5TH COURSE OF CHEMOTHERAPY
     Route: 048
     Dates: start: 202103, end: 2021
  9. CAPECITABINE [Suspect]
     Active Substance: CAPECITABINE
     Dosage: 1500 MG TWICE DAILY; 6TH COURSE OF CHEMOTHERAPY
     Route: 048
     Dates: start: 20210726, end: 20210730
  10. CAPECITABINE [Suspect]
     Active Substance: CAPECITABINE
     Dosage: UNK
     Route: 048
     Dates: start: 20210812, end: 20210822

REACTIONS (1)
  - Myelodysplastic syndrome [Recovered/Resolved]

NARRATIVE: CASE EVENT DATE: 20210101
